FAERS Safety Report 5016440-6 (Version None)
Quarter: 2006Q2

REPORT INFORMATION
  Report Type: 
  Country: None (occurrence: None)
  Receive Date: 20060531
  Receipt Date: 20060531
  Transmission Date: 20061013
  Serious: Yes (Disabling)
  Sender: FDA-Public Use
  Company Number: None

PATIENT
  Age: 6 Year
  Sex: Female

DRUGS (4)
  1. ENBREL [Suspect]
     Indication: UVEITIS
     Dosage: 25MG  ONCE/WK  SC
     Route: 058
     Dates: start: 20050917, end: 20051212
  2. CEFTAZDIME [Concomitant]
  3. NAPROXEN [Concomitant]
  4. METHOTREXATE SODIUM [Concomitant]

REACTIONS (4)
  - EYE PAIN [None]
  - HEADACHE [None]
  - OPTIC NEUROPATHY [None]
  - VISION BLURRED [None]
